FAERS Safety Report 21012316 (Version 18)
Quarter: 2024Q1

REPORT INFORMATION
  Report Type: Report from Study
  Country: US (occurrence: US)
  Receive Date: 20220627
  Receipt Date: 20240207
  Transmission Date: 20240410
  Serious: Yes (Other)
  Sender: FDA-Public Use
  Company Number: US-NOVARTISPH-NVSC2022US146237

PATIENT
  Sex: Female

DRUGS (1)
  1. KESIMPTA [Suspect]
     Active Substance: OFATUMUMAB
     Indication: Product used for unknown indication
     Dosage: UNK
     Route: 065

REACTIONS (33)
  - Choking [Recovering/Resolving]
  - Diverticulitis [Recovering/Resolving]
  - Neuropathy peripheral [Recovered/Resolved]
  - Multiple sclerosis [Unknown]
  - Condition aggravated [Unknown]
  - Balance disorder [Recovering/Resolving]
  - Head discomfort [Unknown]
  - Influenza like illness [Unknown]
  - Memory impairment [Unknown]
  - Emotional disorder [Unknown]
  - Tinnitus [Unknown]
  - Pain [Unknown]
  - Sensory overload [Unknown]
  - Affective disorder [Unknown]
  - Gait disturbance [Not Recovered/Not Resolved]
  - Nausea [Unknown]
  - Eye movement disorder [Unknown]
  - Muscle spasms [Not Recovered/Not Resolved]
  - Inflammation [Unknown]
  - Anxiety [Unknown]
  - Lethargy [Unknown]
  - Fatigue [Unknown]
  - Dysphemia [Unknown]
  - Fall [Unknown]
  - Muscular weakness [Unknown]
  - Micturition urgency [Not Recovered/Not Resolved]
  - Fungal infection [Unknown]
  - Insomnia [Unknown]
  - Irritable bowel syndrome [Unknown]
  - Constipation [Unknown]
  - Gingival bleeding [Unknown]
  - Gingival disorder [Unknown]
  - Ear pain [Recovering/Resolving]
